FAERS Safety Report 20405181 (Version 2)
Quarter: 2022Q1

REPORT INFORMATION
  Report Type: Report from Study
  Country: US (occurrence: US)
  Receive Date: 20220131
  Receipt Date: 20220228
  Transmission Date: 20220424
  Serious: Yes (Other)
  Sender: FDA-Public Use
  Company Number: US-BAYER-2022A011974

PATIENT
  Age: 54 Year
  Sex: Male

DRUGS (3)
  1. STIVARGA [Suspect]
     Active Substance: REGORAFENIB
     Indication: Colorectal cancer metastatic
     Dosage: 40 MG, QD
     Route: 048
     Dates: start: 20220115, end: 20220121
  2. STIVARGA [Suspect]
     Active Substance: REGORAFENIB
     Indication: Gastrointestinal carcinoma
     Dosage: 80 MG, QD
     Dates: start: 20220122
  3. STIVARGA [Suspect]
     Active Substance: REGORAFENIB
     Indication: Colorectal cancer metastatic
     Dosage: 160 MG, QD ON DAYS 1-21 OF 28 DAY CYCLE
     Route: 048

REACTIONS (21)
  - Asthenia [Not Recovered/Not Resolved]
  - Diarrhoea [Recovered/Resolved]
  - Arthralgia [Not Recovered/Not Resolved]
  - Respiratory tract congestion [Not Recovered/Not Resolved]
  - Infection [Not Recovered/Not Resolved]
  - Loss of personal independence in daily activities [None]
  - Off label use [None]
  - Bone pain [Not Recovered/Not Resolved]
  - Musculoskeletal chest pain [Not Recovered/Not Resolved]
  - Pyrexia [Unknown]
  - Migraine [Unknown]
  - Abdominal distension [None]
  - Hypoaesthesia [None]
  - Musculoskeletal stiffness [None]
  - Dry skin [Unknown]
  - Adverse reaction [Unknown]
  - Illness [Not Recovered/Not Resolved]
  - Dysphonia [Not Recovered/Not Resolved]
  - Muscle tightness [None]
  - Muscle tightness [Not Recovered/Not Resolved]
  - Speech disorder [Not Recovered/Not Resolved]

NARRATIVE: CASE EVENT DATE: 20220115
